FAERS Safety Report 7142755-1 (Version None)
Quarter: 2010Q4

REPORT INFORMATION
  Report Type: 
  Country: None (occurrence: None)
  Receive Date: 20101207
  Receipt Date: 20101202
  Transmission Date: 20110411
  Serious: Yes (Death, Life-Threatening)
  Sender: FDA-Public Use
  Company Number: DK-GILEAD-E2B_00000970

PATIENT
  Sex: Female
  Weight: 33 kg

DRUGS (6)
  1. VIREAD [Suspect]
     Indication: HIV INFECTION
     Dosage: 245 MILLIGRAM(S)
     Route: 048
     Dates: start: 20100720, end: 20101021
  2. PREZISTA [Concomitant]
     Indication: HIV INFECTION
     Dosage: 600 MILLIGRAM(S)
     Route: 048
  3. NORVIR [Concomitant]
     Dosage: 100 MILLIGRAM(S)
     Route: 048
  4. ISENTRESS [Concomitant]
     Route: 048
  5. KLOPOXID DAK [Concomitant]
     Route: 048
  6. SULFAMETOXAZOL WITH TRIMETOPRIM SAD [Concomitant]
     Route: 048

REACTIONS (1)
  - RENAL FAILURE [None]
